FAERS Safety Report 25766552 (Version 1)
Quarter: 2025Q3

REPORT INFORMATION
  Report Type: Spontaneous
  Country: JP (occurrence: JP)
  Receive Date: 20250905
  Receipt Date: 20250905
  Transmission Date: 20251021
  Serious: Yes (Death, Life-Threatening, Hospitalization)
  Sender: MACLEODS
  Company Number: JP-MACLEODS PHARMA-MAC2025055032

PATIENT

DRUGS (1)
  1. RIVASTIGMINE [Suspect]
     Active Substance: RIVASTIGMINE
     Indication: Dementia Alzheimer^s type
     Dosage: THIS DOSAGE HAD REMAINED UNCHANGED FOR AT LEAST 32 MONTHS PRIOR TO THE FINAL EPISODE
     Route: 062

REACTIONS (2)
  - Cardio-respiratory arrest [Fatal]
  - Cholinergic syndrome [Recovered/Resolved]
